FAERS Safety Report 16205700 (Version 1)
Quarter: 2019Q2

REPORT INFORMATION
  Report Type: Spontaneous
  Country: ES (occurrence: ES)
  Receive Date: 20190417
  Receipt Date: 20190417
  Transmission Date: 20190711
  Serious: Yes (Other)
  Sender: FDA-Public Use
  Company Number: ES-TEVA-2019-ES-1038347

PATIENT
  Age: 25 Year
  Sex: Male

DRUGS (5)
  1. OLANZAPINE. [Suspect]
     Active Substance: OLANZAPINE
     Indication: PSYCHOTIC SYMPTOM
     Dosage: 10 MILLIGRAM DAILY;
     Route: 065
  2. ARIPIPRAZOLE. [Suspect]
     Active Substance: ARIPIPRAZOLE
     Indication: PSYCHOTIC SYMPTOM
     Dosage: 10 MILLIGRAM DAILY;
     Route: 065
  3. PALIPERIDONE. [Suspect]
     Active Substance: PALIPERIDONE
     Indication: PSYCHOTIC SYMPTOM
     Dosage: 12 MILLIGRAM DAILY;
     Route: 065
  4. CLOZAPINE. [Suspect]
     Active Substance: CLOZAPINE
     Indication: PSYCHOTIC SYMPTOM
     Dosage: 100 MILLIGRAM DAILY;
     Route: 065
  5. AMISULPRIDE [Suspect]
     Active Substance: AMISULPRIDE
     Indication: PSYCHOTIC SYMPTOM
     Dosage: 300 MILLIGRAM DAILY;
     Route: 065

REACTIONS (21)
  - Hallucination, visual [Unknown]
  - Posture abnormal [Unknown]
  - Neuroleptic malignant syndrome [Recovering/Resolving]
  - Somnolence [Unknown]
  - Salivary hypersecretion [Unknown]
  - Therapeutic response decreased [Unknown]
  - Akathisia [Unknown]
  - Orthostatic hypotension [Unknown]
  - Hypotension [Unknown]
  - Hyperhidrosis [Unknown]
  - Pallor [Unknown]
  - Syncope [Unknown]
  - Behaviour disorder [Unknown]
  - Body temperature increased [Recovered/Resolved]
  - Constipation [Unknown]
  - Muscle rigidity [Unknown]
  - Sedation complication [Unknown]
  - Tremor [Unknown]
  - Bradykinesia [Unknown]
  - Mucosal discolouration [Unknown]
  - Disorientation [Recovered/Resolved]
